FAERS Safety Report 10075618 (Version 1)
Quarter: 2014Q2

REPORT INFORMATION
  Report Type: Spontaneous
  Country: US (occurrence: US)
  Receive Date: 20140414
  Receipt Date: 20140414
  Transmission Date: 20141212
  Serious: No
  Sender: FDA-Public Use
  Company Number: US-BAYER-2014-047280

PATIENT
  Age: 55 Year
  Sex: Male
  Weight: 81.63 kg

DRUGS (3)
  1. BAYER EXTRA STRENGTH BACK + BODY PAIN [Suspect]
     Indication: DYSMENORRHOEA
     Dosage: UNK UNK, QD
     Route: 048
     Dates: start: 201311
  2. ALEVE CAPLET [Suspect]
     Indication: ANALGESIC THERAPY
     Dosage: UNK UNK, PRN
     Route: 048
  3. BAYER EXTRA STRENGTH BACK + BODY PAIN [Suspect]
     Indication: ANALGESIC THERAPY
     Dosage: UNK UNK, PRN
     Route: 048

REACTIONS (3)
  - Incorrect drug administration duration [None]
  - Drug ineffective [None]
  - Drug ineffective [None]
